FAERS Safety Report 6270882-X (Version None)
Quarter: 2009Q3

REPORT INFORMATION
  Report Type: 
  Country: None (occurrence: None)
  Receive Date: 20090715
  Receipt Date: 20090612
  Transmission Date: 20100115
  Serious: Yes (Other)
  Sender: FDA-Public Use
  Company Number: DSU-2009-01222

PATIENT
  Age: 34 Year
  Sex: Female
  Weight: 98.8842 kg

DRUGS (5)
  1. BENICAR HCT [Suspect]
     Indication: HYPERTENSION
     Dosage: 40/25 MG (QD) ,PER ORAL
     Route: 048
     Dates: start: 20070522
  2. VYTORIN (EZETIMBE/SIMVASTATIN) (TABLET) [Concomitant]
  3. ACEON (PERINDORIL ERBUMINE) (TABLET) (PERINDOPRIL ERBUMINE) [Concomitant]
  4. NOVOLOG (INSULIN ASPART) (INSULIN ASPART) [Concomitant]
  5. ZYRTEC (CETIRIZINE HYDROCHLORIDE) (TABLET) (CETIRIZINE HYDROCHLORIDE) [Concomitant]

REACTIONS (2)
  - CHRONIC HEPATITIS [None]
  - HEPATITIS ACUTE [None]
